FAERS Safety Report 21657116 (Version 1)
Quarter: 2022Q4

REPORT INFORMATION
  Report Type: Spontaneous
  Country: PT (occurrence: PT)
  Receive Date: 20221129
  Receipt Date: 20221129
  Transmission Date: 20230113
  Serious: Yes (Other)
  Sender: FDA-Public Use
  Company Number: PT-MYLANLABS-2022M1132977

PATIENT
  Age: 48 Year
  Sex: Female

DRUGS (1)
  1. ANASTROZOLE [Suspect]
     Active Substance: ANASTROZOLE
     Indication: Ovarian cancer
     Dosage: UNK
     Route: 065
     Dates: start: 201704, end: 2018

REACTIONS (1)
  - Drug ineffective [Unknown]
